FAERS Safety Report 23618590 (Version 1)
Quarter: 2024Q1

REPORT INFORMATION
  Report Type: Report from Study
  Country: US (occurrence: US)
  Receive Date: 20240311
  Receipt Date: 20240311
  Transmission Date: 20240409
  Serious: No
  Sender: FDA-Public Use
  Company Number: US-BIOVITRUM-2024-US-003894

PATIENT
  Age: 66 Year
  Sex: Male

DRUGS (1)
  1. DOPTELET [Suspect]
     Active Substance: AVATROMBOPAG MALEATE
     Indication: Immune thrombocytopenia
     Dosage: 1 TABLET ONCE EVERY MONDAY, WEDNESDAY, FRIDAY
     Route: 048
     Dates: start: 20230505

REACTIONS (3)
  - Platelet count decreased [Unknown]
  - Hidradenitis [Unknown]
  - Incision site haematoma [Recovered/Resolved]

NARRATIVE: CASE EVENT DATE: 20231201
